FAERS Safety Report 5946032-3 (Version None)
Quarter: 2008Q4

REPORT INFORMATION
  Report Type: 
  Country: None (occurrence: None)
  Receive Date: 20081110
  Receipt Date: 20081103
  Transmission Date: 20090506
  Serious: Yes (Other)
  Sender: FDA-Public Use
  Company Number: GB-NOVOPROD-280870

PATIENT
  Sex: Female
  Weight: 1.6 kg

DRUGS (2)
  1. NOVORAPID [Suspect]
     Indication: DIABETES MELLITUS
     Dosage: 24 IU, QD
     Route: 064
  2. LEVEMIR [Suspect]
     Indication: DIABETES MELLITUS
     Dosage: 26 IU, QD
     Route: 064

REACTIONS (6)
  - FOETAL DISTRESS SYNDROME [None]
  - HIP DYSPLASIA [None]
  - HYPOCALCAEMIA [None]
  - INGUINAL HERNIA [None]
  - NEONATAL RESPIRATORY DISTRESS SYNDROME [None]
  - PREMATURE BABY [None]
